FAERS Safety Report 21082769 (Version 1)
Quarter: 2022Q3

REPORT INFORMATION
  Report Type: Spontaneous
  Country: BG (occurrence: BG)
  Receive Date: 20220714
  Receipt Date: 20220714
  Transmission Date: 20221026
  Serious: Yes (Other)
  Sender: FDA-Public Use
  Company Number: None

PATIENT
  Age: 29 Year
  Sex: Female

DRUGS (1)
  1. LEVOFLOXACIN [Suspect]
     Active Substance: LEVOFLOXACIN
     Indication: Urinary tract infection
     Dosage: 500 MG, QD (500 MG DAILY) (VIVEX 500 MG FILM-COATED TABLETS)
     Route: 048
     Dates: start: 20220617, end: 20220622

REACTIONS (3)
  - Inflammation [Not Recovered/Not Resolved]
  - Arthritis reactive [Not Recovered/Not Resolved]
  - Tendon pain [Not Recovered/Not Resolved]
